FAERS Safety Report 8536906-1 (Version None)
Quarter: 2012Q3

REPORT INFORMATION
  Report Type: 
  Country: None (occurrence: None)
  Receive Date: 20120725
  Receipt Date: 20120717
  Transmission Date: 20120928
  Serious: Yes (Other)
  Sender: FDA-Public Use
  Company Number: JP-VERTEX PHARMACEUTICALS INC.-AE-2012-010739

PATIENT
  Age: 59 Year
  Sex: Male

DRUGS (10)
  1. HUMIRA [Concomitant]
     Indication: CROHN'S DISEASE
     Route: 058
  2. TELAVIC (TELAPREVIR) [Suspect]
     Indication: HEPATITIS C
     Route: 048
     Dates: start: 20120411, end: 20120427
  3. PEG-INTRON [Concomitant]
     Indication: HEPATITIS C
     Route: 058
     Dates: start: 20120411, end: 20120427
  4. REBETOL [Concomitant]
     Indication: HEPATITIS C
     Route: 048
     Dates: start: 20120411, end: 20120427
  5. RABEPRAZOLE SODIUM [Concomitant]
     Route: 048
     Dates: start: 20120419, end: 20120425
  6. URSO 250 [Concomitant]
     Route: 048
     Dates: start: 20120601
  7. ZOLPIDEM [Concomitant]
     Route: 048
     Dates: start: 20110427
  8. ELENTAL [Concomitant]
     Route: 048
     Dates: start: 20091227
  9. PENTASA [Concomitant]
     Route: 048
  10. PENTASA [Concomitant]
     Route: 048

REACTIONS (1)
  - GASTRIC ULCER [None]
